FAERS Safety Report 19277755 (Version 3)
Quarter: 2022Q4

REPORT INFORMATION
  Report Type: Spontaneous
  Country: None (occurrence: US)
  Receive Date: 20210520
  Receipt Date: 20221205
  Transmission Date: 20230113
  Serious: Yes (Other)
  Sender: FDA-Public Use
  Company Number: US-AJANTA PHARMA USA INC.-2110740

PATIENT
  Age: 73 Year
  Sex: Female
  Weight: 61.818 kg

DRUGS (10)
  1. DULOXETINE [Suspect]
     Active Substance: DULOXETINE
     Indication: Anxiety
  2. IBUPROFEN [Concomitant]
     Active Substance: IBUPROFEN
  3. VITAMIN C [Concomitant]
     Active Substance: ASCORBIC ACID
  4. VITAMIN D [Concomitant]
     Active Substance: VITAMIN D NOS
  5. FISH OIL [Concomitant]
     Active Substance: FISH OIL
  6. ACETYLCYSTEINE [Concomitant]
     Active Substance: ACETYLCYSTEINE
  7. SILVER WATER [Concomitant]
  8. CALCIUM\MAGNESIUM [Concomitant]
     Active Substance: CALCIUM\MAGNESIUM
  9. BIOTIN [Concomitant]
     Active Substance: BIOTIN
  10. DIETARY SUPPLEMENT [Concomitant]
     Active Substance: DIETARY SUPPLEMENT

REACTIONS (12)
  - Ligament rupture [Not Recovered/Not Resolved]
  - Fall [Recovered/Resolved]
  - Blunted affect [Not Recovered/Not Resolved]
  - Decreased interest [Not Recovered/Not Resolved]
  - Dissociation [Not Recovered/Not Resolved]
  - Balance disorder [Not Recovered/Not Resolved]
  - Pruritus [Recovering/Resolving]
  - Gait disturbance [Not Recovered/Not Resolved]
  - Intentional product misuse [Not Recovered/Not Resolved]
  - Wrong technique in product usage process [Not Recovered/Not Resolved]
  - Product storage error [Not Recovered/Not Resolved]
  - Product physical issue [Not Recovered/Not Resolved]

NARRATIVE: CASE EVENT DATE: 20200428
